FAERS Safety Report 9795623 (Version 3)
Quarter: 2014Q1

REPORT INFORMATION
  Report Type: Spontaneous
  Country: US (occurrence: US)
  Receive Date: 20140103
  Receipt Date: 20140324
  Transmission Date: 20141002
  Serious: No
  Sender: FDA-Public Use
  Company Number: US-PFIZER INC-2013374146

PATIENT
  Sex: Female

DRUGS (2)
  1. AROMASIN [Suspect]
     Dosage: UNK
  2. EVEROLIMUS [Suspect]
     Dosage: UNK

REACTIONS (3)
  - Stomatitis [Recovering/Resolving]
  - Rash [Recovering/Resolving]
  - Migraine [Recovering/Resolving]
